FAERS Safety Report 5205470-7 (Version None)
Quarter: 2007Q1

REPORT INFORMATION
  Report Type: 
  Country: None (occurrence: None)
  Receive Date: 20070109
  Receipt Date: 20070103
  Transmission Date: 20070707
  Serious: Yes (Death)
  Sender: FDA-Public Use
  Company Number: 163-20785-06120101

PATIENT
  Age: 71 Year
  Sex: Male

DRUGS (18)
  1. THALOMID [Suspect]
     Indication: MULTIPLE MYELOMA
     Dosage: SEE IMAGE
     Route: 048
     Dates: start: 20060925, end: 20061124
  2. THALOMID [Suspect]
     Indication: MULTIPLE MYELOMA
     Dosage: SEE IMAGE
     Route: 048
     Dates: start: 20061024, end: 20061124
  3. MELPHALAN (MELPHALAN) [Concomitant]
  4. TOPROL-XL [Concomitant]
  5. PAROXETINE [Concomitant]
  6. PREDNISONE TAB [Concomitant]
  7. CYANOCOBALAMIN [Concomitant]
  8. METOPROLOL SUCCINATE [Concomitant]
  9. LORTAB [Concomitant]
  10. PROCARDIA [Concomitant]
  11. DURAGESIC (FENTANYL) (POULTICE OR PATCH) [Concomitant]
  12. MILK OF MAGNESIA TAB [Concomitant]
  13. COLACE (DOCUSATE SODIUM) [Concomitant]
  14. IRON (IRON) [Concomitant]
  15. ALLOPURINOL [Concomitant]
  16. CARDIZEM [Concomitant]
  17. FLEXERIL [Concomitant]
  18. LASIX [Concomitant]

REACTIONS (2)
  - RESPIRATORY FAILURE [None]
  - VERTIGO [None]
